FAERS Safety Report 4521761-7 (Version None)
Quarter: 2004Q4

REPORT INFORMATION
  Report Type: 
  Country: None (occurrence: None)
  Receive Date: 20041209
  Receipt Date: 20041006
  Transmission Date: 20050328
  Serious: Yes (Other)
  Sender: FDA-Public Use
  Company Number: 200420202GDDC

PATIENT
  Age: 40 Year
  Sex: Female

DRUGS (7)
  1. FEXOFENADINE HCL [Suspect]
     Indication: URTICARIA
     Route: 048
  2. DESALEX [Concomitant]
     Indication: URTICARIA
     Route: 048
  3. XYZAL [Concomitant]
     Indication: URTICARIA
     Route: 048
  4. INSULIN [Concomitant]
     Indication: DIABETES MELLITUS INSULIN-DEPENDENT
  5. APROVEL [Concomitant]
     Indication: HYPERTENSION
  6. LASIX [Concomitant]
  7. ACTRAPID [Concomitant]

REACTIONS (3)
  - HEPATOTOXICITY [None]
  - JAUNDICE [None]
  - MALAISE [None]
